FAERS Safety Report 8988065 (Version 4)
Quarter: 2013Q1

REPORT INFORMATION
  Report Type: Spontaneous
  Country: DE (occurrence: DE)
  Receive Date: 20121227
  Receipt Date: 20130308
  Transmission Date: 20140127
  Serious: Yes (Other)
  Sender: FDA-Public Use
  Company Number: DE-JNJFOC-20121207759

PATIENT
  Sex: Female

DRUGS (1)
  1. DUROGESIC SMAT [Suspect]
     Indication: PAIN
     Route: 062
     Dates: start: 20121102, end: 20121128

REACTIONS (1)
  - Intraocular pressure increased [Recovering/Resolving]
